FAERS Safety Report 5418417-5 (Version None)
Quarter: 2007Q3

REPORT INFORMATION
  Report Type: 
  Country: None (occurrence: None)
  Receive Date: 20070718
  Receipt Date: 20061208
  Transmission Date: 20080115
  Serious: Yes (Other)
  Sender: FDA-Public Use
  Company Number: 2006151430

PATIENT
  Sex: Female

DRUGS (1)
  1. CELEBREX [Suspect]

REACTIONS (5)
  - FLUSHING [None]
  - HEART RATE INCREASED [None]
  - NAUSEA [None]
  - SWELLING FACE [None]
  - URTICARIA [None]
